FAERS Safety Report 7953157-X (Version None)
Quarter: 2011Q4

REPORT INFORMATION
  Report Type: 
  Country: None (occurrence: None)
  Receive Date: 20111201
  Receipt Date: 20110913
  Transmission Date: 20120403
  Serious: Yes (Death, Other)
  Sender: FDA-Public Use
  Company Number: CH-ASTRAZENECA-2011SE55470

PATIENT
  Age: 91 Year
  Sex: Female

DRUGS (8)
  1. ASPIRIN [Concomitant]
  2. FLAGYL [Concomitant]
     Indication: CLOSTRIDIUM DIFFICILE COLITIS
     Route: 048
     Dates: start: 20110527, end: 20110610
  3. TRILEPTAL [Concomitant]
     Route: 048
  4. TORSEMIDE [Concomitant]
     Route: 048
     Dates: end: 20110506
  5. LAXOBERON [Concomitant]
  6. SEROQUEL [Suspect]
     Route: 048
     Dates: end: 20110606
  7. HALDOL [Suspect]
     Route: 058
     Dates: start: 20110602, end: 20110606
  8. TRAZODONE HCL [Suspect]
     Route: 048
     Dates: start: 20110602

REACTIONS (2)
  - ELECTROCARDIOGRAM QT INTERVAL ABNORMAL [None]
  - DEATH [None]
